FAERS Safety Report 11195310 (Version 2)
Quarter: 2015Q3

REPORT INFORMATION
  Report Type: Spontaneous
  Country: BE (occurrence: BE)
  Receive Date: 20150617
  Receipt Date: 20150831
  Transmission Date: 20151125
  Serious: Yes (Other)
  Sender: FDA-Public Use
  Company Number: BE-ELI_LILLY_AND_COMPANY-BE201506002941

PATIENT
  Age: 44 Year
  Sex: Male
  Weight: 105 kg

DRUGS (2)
  1. MEDROL [Concomitant]
     Active Substance: METHYLPREDNISOLONE
     Indication: PAIN
     Dosage: 16 MG, QD
     Route: 048
     Dates: start: 201504, end: 201507
  2. CYMBALTA [Suspect]
     Active Substance: DULOXETINE HYDROCHLORIDE
     Indication: PAIN
     Dosage: 60 MG, QD
     Route: 065
     Dates: start: 20150521

REACTIONS (5)
  - Abnormal sensation in eye [Unknown]
  - Nausea [Unknown]
  - Ocular discomfort [Unknown]
  - Muscle spasms [Recovered/Resolved]
  - Blepharospasm [Recovered/Resolved]

NARRATIVE: CASE EVENT DATE: 20150605
